FAERS Safety Report 13420408 (Version 2)
Quarter: 2017Q2

REPORT INFORMATION
  Report Type: Spontaneous
  Country: US (occurrence: US)
  Receive Date: 20170407
  Receipt Date: 20170428
  Transmission Date: 20170830
  Serious: Yes (Other)
  Sender: FDA-Public Use
  Company Number: US-PFIZER INC-2017144526

PATIENT
  Age: 66 Year
  Sex: Female

DRUGS (11)
  1. PHENYTOIN. [Concomitant]
     Active Substance: PHENYTOIN
     Dosage: 100 MG, 3X/DAY
     Route: 042
  2. PHENYTOIN. [Concomitant]
     Active Substance: PHENYTOIN
     Dosage: 1300-MG LOADING DOSE
     Route: 042
  3. PROPOFOL. [Suspect]
     Active Substance: PROPOFOL
     Dosage: 60 MCG/KG/MINUTE
     Route: 042
  4. KETAMINE [Concomitant]
     Active Substance: KETAMINE
     Dosage: 65 MCG/KG/MINUTE, INCREMENTALLY TITRATED TO
     Route: 042
  5. LORAZEPAM. [Concomitant]
     Active Substance: LORAZEPAM
     Indication: GENERALISED TONIC-CLONIC SEIZURE
     Dosage: 4 MG, UNK
     Route: 042
  6. PROPOFOL. [Suspect]
     Active Substance: PROPOFOL
     Indication: GENERAL ANAESTHESIA
     Dosage: 50 MCG/KG/MINUTE
     Route: 042
  7. LACOSAMIDE. [Concomitant]
     Active Substance: LACOSAMIDE
     Dosage: 100 MG, 2X/DAY
     Route: 042
  8. LEVETIRACETAM. [Concomitant]
     Active Substance: LEVETIRACETAM
     Indication: GENERALISED TONIC-CLONIC SEIZURE
     Dosage: 750 MG, 2X/DAY
     Route: 042
  9. LACOSAMIDE. [Concomitant]
     Active Substance: LACOSAMIDE
     Dosage: 200-MG LOADING DOSE
     Route: 042
  10. KETAMINE [Concomitant]
     Active Substance: KETAMINE
     Dosage: 25 MCG/KG/MINUTE
     Route: 042
  11. LEVETIRACETAM. [Concomitant]
     Active Substance: LEVETIRACETAM
     Dosage: 1500-MG IV LOAD
     Route: 042

REACTIONS (1)
  - Electroencephalogram abnormal [Recovering/Resolving]
